FAERS Safety Report 24351984 (Version 1)
Quarter: 2024Q3

REPORT INFORMATION
  Report Type: Report from Study
  Country: IT (occurrence: IT)
  Receive Date: 20240923
  Receipt Date: 20240923
  Transmission Date: 20241016
  Serious: No
  Sender: ROCHE
  Company Number: IT-ROCHE-3352141

PATIENT
  Age: 79 Year
  Sex: Female
  Weight: 56.0 kg

DRUGS (9)
  1. HERCEPTIN [Suspect]
     Active Substance: TRASTUZUMAB
     Indication: HER2 positive breast cancer
     Dosage: MOST RECENT DOSE PRIOR TO THE EVENT: 24/OCT/2017
     Route: 041
     Dates: start: 20171003, end: 20171003
  2. PERJETA [Suspect]
     Active Substance: PERTUZUMAB
     Indication: HER2 positive breast cancer
     Dosage: MOST RECENT DOSE PRIOR TO THE EVENT: 24/OCT/2017
     Route: 042
     Dates: start: 20171003, end: 20171003
  3. TAXOTERE [Suspect]
     Active Substance: DOCETAXEL
     Indication: HER2 positive breast cancer
     Route: 042
     Dates: start: 20171003, end: 20180117
  4. ATORVASTATIN [Concomitant]
     Active Substance: ATORVASTATIN
     Dosage: ONGOING = CHECKED
     Dates: start: 20040615
  5. RAMIPRIL [Concomitant]
     Active Substance: RAMIPRIL
     Indication: Aortic valve incompetence
     Dosage: ONGOING = CHECKED
     Dates: start: 20200128
  6. LYRICA [Concomitant]
     Active Substance: PREGABALIN
     Indication: Pruritus
     Dosage: ONGOING = CHECKED
     Dates: start: 20210330, end: 20230915
  7. LYRICA [Concomitant]
     Active Substance: PREGABALIN
     Dosage: ONGOING = CHECKED
     Dates: start: 20210720
  8. PANTOPRAZOLE SODIUM [Concomitant]
     Active Substance: PANTOPRAZOLE SODIUM
     Dosage: ONGOING = NOT CHECKED
     Dates: start: 20221230, end: 20230411
  9. BETAMETHASONE [Concomitant]
     Active Substance: BETAMETHASONE
     Dosage: ONGOING = CHECKED
     Dates: start: 20221223

REACTIONS (2)
  - Interstitial lung disease [Recovered/Resolved]
  - Asthenia [Recovered/Resolved]

NARRATIVE: CASE EVENT DATE: 20230204
